FAERS Safety Report 13948567 (Version 1)
Quarter: 2017Q3

REPORT INFORMATION
  Report Type: Spontaneous
  Country: DE (occurrence: DE)
  Receive Date: 20170908
  Receipt Date: 20170908
  Transmission Date: 20171128
  Serious: Yes (Congenital Anomaly, Other)
  Sender: FDA-Public Use
  Company Number: DE-AUROBINDO-AUR-APL-2017-39693

PATIENT
  Age: 1 Year
  Sex: Male
  Weight: 3.31 kg

DRUGS (4)
  1. BALDRIAN-DISPERT [Concomitant]
     Active Substance: HERBALS
     Indication: ANXIETY DISORDER
     Dosage: 500 MG, AS DIRECTED
     Route: 064
  2. FOLSAEURE [Concomitant]
     Active Substance: FOLIC ACID
     Indication: PROPHYLAXIS OF NEURAL TUBE DEFECT
     Route: 064
  3. PROTAPHANE [Concomitant]
     Active Substance: INSULIN HUMAN
     Indication: GESTATIONAL DIABETES
     Dosage: 221 U INTERNATIONAL ONCE A DAY
     Route: 064
  4. ESCITALOPRAM 20 MG [Suspect]
     Active Substance: ESCITALOPRAM OXALATE
     Indication: ANXIETY DISORDER
     Dosage: 20 MG, ONCE A DAY
     Route: 064
     Dates: start: 20160306, end: 20161114

REACTIONS (7)
  - Congenital tricuspid valve incompetence [Recovered/Resolved]
  - Selective eating disorder [Recovered/Resolved]
  - Cryptorchism [Unknown]
  - Neonatal respiratory distress syndrome [Recovered/Resolved]
  - Congenital pulmonary hypertension [Recovered/Resolved]
  - Atrial septal defect [Not Recovered/Not Resolved]
  - Pulmonary artery stenosis congenital [Recovered/Resolved]

NARRATIVE: CASE EVENT DATE: 20161114
